FAERS Safety Report 17299656 (Version 1)
Quarter: 2020Q1

REPORT INFORMATION
  Report Type: Spontaneous
  Country: US (occurrence: US)
  Receive Date: 20200122
  Receipt Date: 20200122
  Transmission Date: 20200409
  Serious: No
  Sender: FDA-Public Use
  Company Number: US-ALLERGAN-1906869US

PATIENT
  Age: 81 Year
  Sex: Female

DRUGS (13)
  1. RESTASIS [Suspect]
     Active Substance: CYCLOSPORINE
     Indication: DRY EYE
     Dosage: 2 GTT, BID
     Route: 047
     Dates: start: 20190214, end: 201902
  2. OTC LUBRICANT PM GEL [Concomitant]
     Indication: DRY EYE
     Dosage: ACTUAL: QHS, AS NEEDED
     Route: 047
  3. SOTALOL. [Concomitant]
     Active Substance: SOTALOL
     Indication: CARDIAC DISORDER
     Dosage: ACTUAL: 120 MG, 1 1/2 TABLETS QAM AND 1 TABLET QHS
     Route: 048
  4. WARM COMPRESSES [Concomitant]
     Indication: DRY EYE
     Dosage: ACTUAL: QHS, AS NEEDED
     Route: 061
  5. RESTASIS [Suspect]
     Active Substance: CYCLOSPORINE
     Dosage: 2 GTT, QID
     Route: 047
     Dates: start: 20190213, end: 20190213
  6. DIGOXIN. [Concomitant]
     Active Substance: DIGOXIN
     Indication: CARDIAC DISORDER
     Dosage: 0.125 MG, QOD
     Route: 048
  7. REFRESH TEARS [Concomitant]
     Active Substance: CARBOXYMETHYLCELLULOSE SODIUM
     Indication: DRY EYE
     Dosage: 2 GTT, PRN
     Route: 047
  8. UNSPECIFIED EYE DROPS [Concomitant]
     Active Substance: UNSPECIFIED INGREDIENT
  9. LEVOTHYROXINE. [Concomitant]
     Active Substance: LEVOTHYROXINE
     Indication: HYPOTHYROIDISM
     Dosage: ACTUAL: 0.05 MG, QD, EXCEPT 1/2 ON SATURDAY
     Route: 048
  10. LORAZEPAM. [Concomitant]
     Active Substance: LORAZEPAM
     Indication: SLEEP DISORDER
     Dosage: 2 MG, QHS
     Route: 048
  11. RESTASIS [Suspect]
     Active Substance: CYCLOSPORINE
     Dosage: 2 GTT, BID
     Route: 047
     Dates: start: 201902, end: 201902
  12. METOPROLOL TARTRATE. [Concomitant]
     Active Substance: METOPROLOL TARTRATE
     Indication: HYPOTENSION
     Dosage: 500 MG, BID
     Route: 048
  13. JOHNSONS BABY LOTION [Concomitant]
     Active Substance: COSMETICS
     Indication: DRY EYE
     Dosage: ACTUAL: QHS, AS NEEDED
     Route: 061

REACTIONS (12)
  - Eye swelling [Not Recovered/Not Resolved]
  - Packaging design issue [Unknown]
  - Visual impairment [Not Recovered/Not Resolved]
  - Ocular hyperaemia [Not Recovered/Not Resolved]
  - Lacrimation increased [Not Recovered/Not Resolved]
  - Eye irritation [Not Recovered/Not Resolved]
  - Foreign body sensation in eyes [Not Recovered/Not Resolved]
  - Eye pain [Not Recovered/Not Resolved]
  - Product primary packaging issue [Unknown]
  - Off label use [Unknown]
  - Superficial injury of eye [Not Recovered/Not Resolved]
  - Drug ineffective [Unknown]

NARRATIVE: CASE EVENT DATE: 20190213
